FAERS Safety Report 4339448-2 (Version None)
Quarter: 2004Q2

REPORT INFORMATION
  Report Type: 
  Country: None (occurrence: None)
  Receive Date: 20040415
  Receipt Date: 20040405
  Transmission Date: 20050107
  Serious: Yes (Disabling, Other)
  Sender: FDA-Public Use
  Company Number: GB-GLAXOSMITHKLINE-B0329243A

PATIENT
  Age: 15 Year
  Sex: Male
  Weight: 64.71 kg

DRUGS (1)
  1. LAMOTRIGINE [Suspect]
     Indication: EPILEPSY
     Dosage: 150MG PER DAY
     Route: 048
     Dates: start: 20030905, end: 20040109

REACTIONS (3)
  - INITIAL INSOMNIA [None]
  - SLEEP DISORDER [None]
  - SLEEP PARALYSIS [None]
